FAERS Safety Report 6602426-4 (Version None)
Quarter: 2010Q1

REPORT INFORMATION
  Report Type: 
  Country: None (occurrence: None)
  Receive Date: 20100225
  Receipt Date: 20100216
  Transmission Date: 20100710
  Serious: Yes (Hospitalization)
  Sender: FDA-Public Use
  Company Number: PHHY2010GB09668

PATIENT
  Sex: Female

DRUGS (2)
  1. NEORAL [Suspect]
     Indication: HEART TRANSPLANT
     Dosage: 50 MG, BID
  2. SANDIMMUNE [Concomitant]
     Route: 042

REACTIONS (4)
  - COMA SCALE ABNORMAL [None]
  - DYSPNOEA [None]
  - ENDOTRACHEAL INTUBATION [None]
  - LEFT VENTRICULAR FAILURE [None]
